FAERS Safety Report 13960657 (Version 2)
Quarter: 2018Q3

REPORT INFORMATION
  Report Type: Spontaneous
  Country: US (occurrence: US)
  Receive Date: 20170912
  Receipt Date: 20180828
  Transmission Date: 20181010
  Serious: No
  Sender: FDA-Public Use
  Company Number: US-ALLERGAN-1708963US

PATIENT
  Sex: Female

DRUGS (1)
  1. LEXAPRO [Suspect]
     Active Substance: ESCITALOPRAM OXALATE
     Indication: PRODUCT USED FOR UNKNOWN INDICATION
     Dosage: 20 MG, QD
     Route: 048

REACTIONS (6)
  - Anger [Unknown]
  - Depression [Unknown]
  - Anxiety [Unknown]
  - Labile blood pressure [Unknown]
  - Mental status changes [Unknown]
  - Drug ineffective [Unknown]
